FAERS Safety Report 9415286 (Version 2)
Quarter: 2013Q3

REPORT INFORMATION
  Report Type: Spontaneous
  Country: NL (occurrence: NL)
  Receive Date: 20130723
  Receipt Date: 20130807
  Transmission Date: 20140515
  Serious: Yes (Other)
  Sender: FDA-Public Use
  Company Number: NL-PFIZER INC-2013213781

PATIENT
  Age: 50 Year
  Sex: Female

DRUGS (5)
  1. LYRICA [Suspect]
     Indication: NEURALGIA
     Dosage: 75 MG, 3X/DAY
     Dates: start: 20120518
  2. DICLOFENAC [Concomitant]
     Indication: PAIN
     Dosage: 50 MG, 3X/DAY
     Route: 048
  3. DICLOFENAC [Concomitant]
     Dosage: 100 MG, 1X/DAY
     Route: 054
  4. OMEPRAZOL [Concomitant]
     Dosage: 40 MG, 1X/DAY
  5. DUSPATAL ^PHILIPS-D^ [Concomitant]
     Dosage: 200 MG, 2X/DAY

REACTIONS (2)
  - Gastrointestinal obstruction [Recovered/Resolved]
  - Wrong technique in drug usage process [Unknown]
